FAERS Safety Report 8249316-1 (Version None)
Quarter: 2012Q2

REPORT INFORMATION
  Report Type: 
  Country: None (occurrence: None)
  Receive Date: 20120402
  Receipt Date: 20120327
  Transmission Date: 20120825
  Serious: Yes (Other)
  Sender: FDA-Public Use
  Company Number: TR-BAYER-2012-029868

PATIENT
  Age: 67 Year
  Sex: Female

DRUGS (8)
  1. ASPIRIN [Concomitant]
  2. DILTIAZEM HCL [Concomitant]
  3. BUDESONIDE [Concomitant]
  4. FUROSEMIDE [Concomitant]
  5. FORMOTEROL FUMARATE [Concomitant]
  6. IOPROMIDE [Suspect]
     Indication: ARTERIOGRAM CORONARY
  7. ALBUTEROL SULFATE AND IPRATROPIUM BROMIDE [Concomitant]
  8. MONTELUKAST SODIUM [Concomitant]

REACTIONS (1)
  - ACUTE GENERALISED EXANTHEMATOUS PUSTULOSIS [None]
